FAERS Safety Report 12641532 (Version 1)
Quarter: 2016Q3

REPORT INFORMATION
  Report Type: Spontaneous
  Country: US (occurrence: US)
  Receive Date: 20160810
  Receipt Date: 20160810
  Transmission Date: 20161109
  Serious: Yes (Death, Other)
  Sender: FDA-Public Use
  Company Number: US-PFIZER INC-3276748

PATIENT
  Age: 66 Year
  Sex: Female

DRUGS (4)
  1. CIPROFLOXACIN. [Suspect]
     Active Substance: CIPROFLOXACIN
     Indication: URINARY TRACT INFECTION
     Dosage: 500 MG, FREQ: 2 DAY; INTERVAL: 1
  2. MELOXICAM. [Suspect]
     Active Substance: MELOXICAM
     Dosage: 15 MG, DAILY
  3. CIPROFLOXACIN. [Suspect]
     Active Substance: CIPROFLOXACIN
     Dosage: 500 MG, 2X/DAY
  4. MELOXICAM. [Suspect]
     Active Substance: MELOXICAM
     Indication: OSTEOARTHRITIS
     Dosage: 15 MG, FREQ: 1 DAY; INTERVAL: 1

REACTIONS (5)
  - Granulomatosis with polyangiitis [Fatal]
  - Tubulointerstitial nephritis [Fatal]
  - Haemorrhage [Fatal]
  - Retroperitoneal haemorrhage [Fatal]
  - Acute kidney injury [Unknown]
